FAERS Safety Report 19730694 (Version 1)
Quarter: 2021Q3

REPORT INFORMATION
  Report Type: Spontaneous
  Country: US (occurrence: US)
  Receive Date: 20210820
  Receipt Date: 20210820
  Transmission Date: 20211014
  Serious: No
  Sender: FDA-Public Use
  Company Number: US-SA-2021SA274465

PATIENT
  Age: 10 Year
  Sex: Male

DRUGS (1)
  1. ENOXAPARIN SODIUM ? WINTHROP [Suspect]
     Active Substance: ENOXAPARIN SODIUM
     Indication: BLOOD DISORDER
     Dosage: 40 MG, BID
     Route: 065
     Dates: start: 20210407

REACTIONS (3)
  - Product storage error [Unknown]
  - Product dispensing error [Unknown]
  - Wrong technique in device usage process [Unknown]
